FAERS Safety Report 12010848 (Version 3)
Quarter: 2016Q1

REPORT INFORMATION
  Report Type: Spontaneous
  Country: US (occurrence: US)
  Receive Date: 20160205
  Receipt Date: 20160318
  Transmission Date: 20160526
  Serious: Yes (Death, Hospitalization, Other)
  Sender: FDA-Public Use
  Company Number: US-ACTELION-A-NJ2016-130752

PATIENT
  Age: 54 Year
  Sex: Male

DRUGS (2)
  1. RIOCIGUAT [Concomitant]
     Active Substance: RIOCIGUAT
  2. VELETRI [Suspect]
     Active Substance: EPOPROSTENOL
     Indication: PULMONARY ARTERIAL HYPERTENSION
     Dosage: 4.4 NG/KG, PER MIN
     Route: 042
     Dates: start: 20150720

REACTIONS (5)
  - Pulmonary thrombosis [Unknown]
  - Infection [Unknown]
  - Post procedural complication [Unknown]
  - Endarterectomy [Unknown]
  - Death [Fatal]
